FAERS Safety Report 20120213 (Version 1)
Quarter: 2021Q4

REPORT INFORMATION
  Report Type: Spontaneous
  Country: DE (occurrence: DE)
  Receive Date: 20211126
  Receipt Date: 20211126
  Transmission Date: 20220303
  Serious: Yes (Other)
  Sender: FDA-Public Use
  Company Number: DE-PFIZER INC-202101602943

PATIENT
  Sex: Male

DRUGS (1)
  1. LORLATINIB [Suspect]
     Active Substance: LORLATINIB

REACTIONS (5)
  - Neurological symptom [Unknown]
  - Psychiatric symptom [Unknown]
  - Personality change [Unknown]
  - Cognitive disorder [Unknown]
  - Affective disorder [Unknown]
